FAERS Safety Report 4898901-3 (Version None)
Quarter: 2006Q1

REPORT INFORMATION
  Report Type: 
  Country: None (occurrence: None)
  Receive Date: 20060131
  Receipt Date: 20060117
  Transmission Date: 20060701
  Serious: Yes (Hospitalization)
  Sender: FDA-Public Use
  Company Number: 2006PV007148

PATIENT
  Age: 62 Year
  Sex: Female

DRUGS (3)
  1. BYETTA [Suspect]
     Indication: DIABETES MELLITUS NON-INSULIN-DEPENDENT
     Dosage: 5 MCG; QD; SC
     Route: 058
     Dates: start: 20051101
  2. METFORMIN HYDROCHLORIDE [Concomitant]
  3. LANTUS [Concomitant]

REACTIONS (5)
  - CAROTID ARTERY OCCLUSION [None]
  - COUGH [None]
  - DIZZINESS [None]
  - FALL [None]
  - FOOT FRACTURE [None]
